FAERS Safety Report 14356086 (Version 1)
Quarter: 2018Q1

REPORT INFORMATION
  Report Type: Report from Study
  Country: US (occurrence: US)
  Receive Date: 20180105
  Receipt Date: 20180105
  Transmission Date: 20180509
  Serious: Yes (Death)
  Sender: FDA-Public Use
  Company Number: US-EXELIXIS-CABO-17011922

PATIENT
  Age: 77 Year
  Sex: Male

DRUGS (21)
  1. RANEXA [Concomitant]
     Active Substance: RANOLAZINE
  2. FOLBEE [Concomitant]
     Active Substance: CYANOCOBALAMIN\FOLIC ACID\PYRIDOXINE HYDROCHLORIDE
  3. FENTANYL. [Concomitant]
     Active Substance: FENTANYL
  4. CABOMETYX [Suspect]
     Active Substance: CABOZANTINIB S-MALATE
     Indication: RENAL CANCER
     Dosage: 60 MG, QD
     Route: 048
     Dates: start: 20171017
  5. HYDRALAZINE [Concomitant]
     Active Substance: HYDRALAZINE HYDROCHLORIDE
  6. NTG [Concomitant]
     Active Substance: NITROGLYCERIN
  7. CLONIDINE. [Concomitant]
     Active Substance: CLONIDINE
  8. VITAMIN B12 [Concomitant]
     Active Substance: CYANOCOBALAMIN
  9. ASA [Concomitant]
     Active Substance: ASPIRIN
  10. PROTONIX [Concomitant]
     Active Substance: PANTOPRAZOLE SODIUM
  11. VITAMINS [Concomitant]
     Active Substance: VITAMINS
  12. AUGMENTIN [Concomitant]
     Active Substance: AMOXICILLIN\CLAVULANATE POTASSIUM
  13. COUMADIN [Concomitant]
     Active Substance: WARFARIN SODIUM
  14. PLAVIX [Concomitant]
     Active Substance: CLOPIDOGREL BISULFATE
  15. ISOSORBIDE. [Concomitant]
     Active Substance: ISOSORBIDE
  16. METOPROLOL. [Concomitant]
     Active Substance: METOPROLOL
  17. AMLODIPINE [Concomitant]
     Active Substance: AMLODIPINE BESYLATE
  18. LASIX [Concomitant]
     Active Substance: FUROSEMIDE
  19. COQ10 [Concomitant]
     Active Substance: UBIDECARENONE
  20. SYNTHROID [Concomitant]
     Active Substance: LEVOTHYROXINE SODIUM
  21. KCL [Concomitant]
     Active Substance: POTASSIUM CHLORIDE

REACTIONS (1)
  - Death [Fatal]

NARRATIVE: CASE EVENT DATE: 20171212
